FAERS Safety Report 18959532 (Version 1)
Quarter: 2021Q1

REPORT INFORMATION
  Report Type: Spontaneous
  Country: US (occurrence: US)
  Receive Date: 20210302
  Receipt Date: 20210302
  Transmission Date: 20210420
  Serious: No
  Sender: FDA-Public Use
  Company Number: US-SA-2021SA070209

PATIENT
  Age: 61 Year
  Sex: Male

DRUGS (3)
  1. HUMIRA [Suspect]
     Active Substance: ADALIMUMAB
     Dosage: 40 MG, QOW
     Route: 058
     Dates: start: 20200310, end: 20210111
  2. METHOTREXATE. [Suspect]
     Active Substance: METHOTREXATE
     Dosage: UNK
  3. ARAVA [Suspect]
     Active Substance: LEFLUNOMIDE
     Dosage: UNK

REACTIONS (3)
  - Arthralgia [Unknown]
  - Hypersensitivity [Unknown]
  - Mouth ulceration [Recovered/Resolved]

NARRATIVE: CASE EVENT DATE: 2021
